FAERS Safety Report 23207851 (Version 1)
Quarter: 2023Q4

REPORT INFORMATION
  Report Type: Spontaneous
  Country: CN (occurrence: CN)
  Receive Date: 20231121
  Receipt Date: 20231121
  Transmission Date: 20240110
  Serious: Yes (Other)
  Sender: FDA-Public Use
  Company Number: CN-AMGEN-CHNSP2023204427

PATIENT
  Age: 57 Year
  Sex: Female
  Weight: 65 kg

DRUGS (3)
  1. PROLIA [Suspect]
     Active Substance: DENOSUMAB
     Indication: Mineral supplementation
     Dosage: 60 MILLIGRAM
     Route: 058
     Dates: start: 20231105, end: 20231105
  2. CELECOXIB [Concomitant]
     Active Substance: CELECOXIB
     Indication: Analgesic therapy
     Dosage: 0.2 GRAM (FREQUENCY: 2, DURATION OF REGIMEN: 1)
     Route: 048
     Dates: start: 20231030, end: 20231108
  3. BUCINNAZINE HYDROCHLORIDE [Concomitant]
     Active Substance: BUCINNAZINE HYDROCHLORIDE
     Indication: Analgesic therapy
     Dosage: 60 MILLIGRAM (FREQUENCY: 3, DURATION OF REGIMEN: 1)
     Route: 048
     Dates: start: 20231027, end: 20231112

REACTIONS (2)
  - Influenza like illness [Recovered/Resolved]
  - Urinary tract infection [Recovered/Resolved]

NARRATIVE: CASE EVENT DATE: 20231105
